FAERS Safety Report 6809844-X (Version None)
Quarter: 2010Q2

REPORT INFORMATION
  Report Type: 
  Country: None (occurrence: None)
  Receive Date: 20100630
  Receipt Date: 20100623
  Transmission Date: 20101027
  Serious: Yes (Hospitalization, Other)
  Sender: FDA-Public Use
  Company Number: US-BAYER-201016188BCC

PATIENT
  Sex: Female

DRUGS (5)
  1. ALEVE [Suspect]
     Indication: HEADACHE
     Dosage: TOTAL DAILY DOSE: 440 MG  UNIT DOSE: 220 MG
     Route: 048
     Dates: start: 19950101, end: 19950101
  2. ALEVE [Suspect]
     Dosage: TOTAL DAILY DOSE: 220 MG  UNIT DOSE: 220 MG
     Route: 048
     Dates: start: 20100101
  3. PREVACID [Concomitant]
     Route: 065
  4. SINGULAIR [Concomitant]
     Route: 065
  5. UNKNOWN NOSE SPRAY [Concomitant]
     Route: 065

REACTIONS (17)
  - CHILLS [None]
  - COORDINATION ABNORMAL [None]
  - DIZZINESS [None]
  - EYE SWELLING [None]
  - FEELING HOT [None]
  - GENERALISED ERYTHEMA [None]
  - HYPERSENSITIVITY [None]
  - INFLAMMATION [None]
  - LIP SWELLING [None]
  - OEDEMA MOUTH [None]
  - PRURITUS [None]
  - RASH MACULAR [None]
  - RETCHING [None]
  - SWELLING [None]
  - URTICARIA [None]
  - VIRAL INFECTION [None]
  - VOMITING [None]
